FAERS Safety Report 9259522 (Version 1)
Quarter: 2013Q2

REPORT INFORMATION
  Report Type: Spontaneous
  Country: US (occurrence: US)
  Receive Date: 20130429
  Receipt Date: 20130429
  Transmission Date: 20140414
  Serious: No
  Sender: FDA-Public Use
  Company Number: US-009507513-1304USA014493

PATIENT
  Sex: Male

DRUGS (2)
  1. EMEND [Suspect]
     Indication: NAUSEA
     Dosage: 125 MG ON DAY1/ 80 MG ON DAYS 2 AND 3
     Route: 048
     Dates: start: 201303
  2. PLAVIX [Concomitant]

REACTIONS (1)
  - Constipation [Recovered/Resolved]
